FAERS Safety Report 8886753 (Version 5)
Quarter: 2013Q1

REPORT INFORMATION
  Report Type: Spontaneous
  Country: AU (occurrence: AU)
  Receive Date: 20121105
  Receipt Date: 20130110
  Transmission Date: 20140127
  Serious: Yes (Other)
  Sender: FDA-Public Use
  Company Number: PHHY2012AU099464

PATIENT
  Age: 81 Year
  Sex: Female

DRUGS (3)
  1. ACLASTA [Suspect]
     Indication: OSTEOPOROSIS
     Dosage: 5 MG
     Route: 042
     Dates: start: 20110914
  2. KARVEZIDE [Concomitant]
     Indication: HYPERTENSION
     Dosage: 1 DF, UNK
     Route: 048
     Dates: start: 20121026
  3. VITAMIN D [Concomitant]
     Indication: OSTEOPOROSIS
     Dosage: 50000 U MONTHLY
     Route: 048
     Dates: start: 20120227

REACTIONS (3)
  - Myocardial infarction [Not Recovered/Not Resolved]
  - Chest pain [Recovered/Resolved]
  - Bradycardia [Not Recovered/Not Resolved]
